FAERS Safety Report 5279331-1 (Version None)
Quarter: 2007Q1

REPORT INFORMATION
  Report Type: 
  Country: None (occurrence: None)
  Receive Date: 20070328
  Receipt Date: 20060330
  Transmission Date: 20070707
  Serious: No
  Sender: FDA-Public Use
  Company Number: US-AMGEN-US174490

PATIENT
  Sex: Female
  Weight: 49 kg

DRUGS (3)
  1. NEULASTA [Suspect]
     Indication: CHEMOTHERAPY
     Route: 058
     Dates: start: 20060310
  2. ADRIAMYCIN PFS [Concomitant]
     Dates: start: 20060309
  3. CYTOXAN [Concomitant]
     Dates: start: 20060309

REACTIONS (1)
  - LEUKOPENIA [None]
